FAERS Safety Report 5533133-7 (Version None)
Quarter: 2007Q4

REPORT INFORMATION
  Report Type: 
  Country: None (occurrence: None)
  Receive Date: 20071204
  Receipt Date: 20071127
  Transmission Date: 20080405
  Serious: Yes (Hospitalization)
  Sender: FDA-Public Use
  Company Number: FI-AVENTIS-200720892GDDC

PATIENT
  Age: 53 Year
  Sex: Female

DRUGS (14)
  1. ARAVA [Suspect]
     Route: 048
     Dates: start: 20020101, end: 20070705
  2. ATACAND [Concomitant]
     Dosage: DOSE: UNK
     Route: 048
  3. PHYSIOTENS [Concomitant]
     Dosage: DOSE: UNK
     Route: 048
  4. SPIRESIS [Concomitant]
     Dosage: DOSE: UNK
     Route: 048
  5. ESCOR [Concomitant]
     Dosage: DOSE: UNK
     Route: 048
  6. OXIKLORIN [Concomitant]
     Dosage: DOSE: UNK
     Route: 048
  7. NEXIUM [Concomitant]
     Dosage: DOSE: UNK
     Route: 048
  8. EMCONCOR                           /00802601/ [Concomitant]
     Dosage: DOSE: UNK
     Route: 048
  9. LESCOL [Concomitant]
     Dosage: DOSE: UNK
     Route: 048
  10. SINGULAIR [Concomitant]
     Dosage: DOSE: UNK
     Route: 048
  11. VENTOLIN [Concomitant]
     Dosage: DOSE: UNK
  12. LANTUS [Concomitant]
     Dosage: DOSE: UNK
     Route: 058
  13. NOVORAPID [Concomitant]
     Dosage: DOSE: UNK
     Route: 058
  14. EVOREL                             /00045401/ [Concomitant]
     Dosage: DOSE: UNK
     Route: 061

REACTIONS (1)
  - LICHEN PLANUS [None]
